FAERS Safety Report 5122681-X (Version None)
Quarter: 2006Q4

REPORT INFORMATION
  Report Type: 
  Country: None (occurrence: None)
  Receive Date: 20061005
  Receipt Date: 20061005
  Transmission Date: 20070319
  Serious: No
  Sender: FDA-Public Use
  Company Number: None

PATIENT
  Sex: Male
  Weight: 90.7194 kg

DRUGS (1)
  1. MORPHINE SULFATE [Suspect]
     Indication: PAIN
     Dosage: 2 MG Q 5 MIN X 5 IV
     Route: 042
     Dates: start: 20061004

REACTIONS (2)
  - ERYTHEMA [None]
  - PRURITUS [None]
